FAERS Safety Report 6780403-0 (Version None)
Quarter: 2010Q2

REPORT INFORMATION
  Report Type: 
  Country: None (occurrence: None)
  Receive Date: 20100619
  Receipt Date: 20100616
  Transmission Date: 20101027
  Serious: Yes (Hospitalization, Other)
  Sender: FDA-Public Use
  Company Number: US-RB-025762-09

PATIENT
  Sex: Male

DRUGS (4)
  1. SUBOXONE [Suspect]
     Route: 065
     Dates: start: 20090801, end: 20091231
  2. SUBOXONE [Suspect]
     Route: 060
     Dates: start: 20100101
  3. XANAX [Suspect]
     Indication: DEPRESSION
     Route: 065
     Dates: end: 20100101
  4. XANAX [Suspect]
     Indication: ANXIETY
     Route: 065
     Dates: end: 20100101

REACTIONS (7)
  - CHLAMYDIAL INFECTION [None]
  - CONVULSION [None]
  - DEPRESSION [None]
  - HALLUCINATION, AUDITORY [None]
  - INSOMNIA [None]
  - JOINT SWELLING [None]
  - TREMOR [None]
